FAERS Safety Report 7637928-5 (Version None)
Quarter: 2011Q3

REPORT INFORMATION
  Report Type: 
  Country: None (occurrence: None)
  Receive Date: 20110727
  Receipt Date: 20110719
  Transmission Date: 20111222
  Serious: Yes (Hospitalization, Other)
  Sender: FDA-Public Use
  Company Number: US-BAYER-2011-008961

PATIENT
  Age: 28 Year
  Sex: Female
  Weight: 61.224 kg

DRUGS (4)
  1. YASMIN [Suspect]
     Indication: CONTRACEPTION
     Dosage: UNK
     Route: 048
     Dates: start: 20050801, end: 20070501
  2. PAXIL [Concomitant]
     Indication: ANXIETY
     Dosage: 30 MG, QD
     Dates: start: 20050101
  3. PAXIL [Concomitant]
     Dosage: 30 MG, QD
     Dates: start: 20021001, end: 20031001
  4. CHAUTIX [Concomitant]
     Dosage: 1 MG, UNK
     Dates: start: 20080128

REACTIONS (9)
  - DYSPEPSIA [None]
  - FATIGUE [None]
  - ISCHAEMIC STROKE [None]
  - HEMIPARESIS [None]
  - ANXIETY [None]
  - AMNESIA [None]
  - BRAIN INJURY [None]
  - CHOLELITHIASIS [None]
  - GALLBLADDER DISORDER [None]
